FAERS Safety Report 25251906 (Version 2)
Quarter: 2025Q3

REPORT INFORMATION
  Report Type: Spontaneous
  Country: JP (occurrence: JP)
  Receive Date: 20250429
  Receipt Date: 20250805
  Transmission Date: 20251021
  Serious: Yes (Other)
  Sender: ALEXION PHARMACEUTICALS
  Company Number: JP-ASTRAZENECA-202504GLO020114JP

PATIENT
  Age: 52 Year
  Sex: Female
  Weight: 51.9 kg

DRUGS (1)
  1. IRESSA [Suspect]
     Active Substance: GEFITINIB
     Indication: Non-small cell lung cancer
     Dosage: 250 MILLIGRAM, QD
     Route: 065

REACTIONS (2)
  - Tubulointerstitial nephritis [Unknown]
  - IgA nephropathy [Unknown]
